FAERS Safety Report 9534270 (Version 3)
Quarter: 2013Q4

REPORT INFORMATION
  Report Type: Report from Study
  Country: JP (occurrence: JP)
  Receive Date: 20130918
  Receipt Date: 20131210
  Transmission Date: 20140711
  Serious: Yes (Hospitalization)
  Sender: FDA-Public Use
  Company Number: JP-VIIV HEALTHCARE LIMITED-B0357482A

PATIENT
  Age: 43 Year
  Sex: Male

DRUGS (50)
  1. CELSENTRI [Suspect]
     Indication: HIV INFECTION
     Route: 048
     Dates: start: 20091110
  2. COMBIVIR [Suspect]
     Indication: HIV INFECTION
     Route: 048
     Dates: start: 20000606, end: 20040202
  3. COMBIVIR [Suspect]
     Indication: HIV INFECTION
     Route: 048
     Dates: start: 20040217, end: 20071022
  4. ISENTRESS [Suspect]
     Indication: HIV INFECTION
     Route: 048
     Dates: start: 20080813, end: 20091109
  5. INTELENCE [Suspect]
     Indication: HIV INFECTION
     Route: 048
     Dates: start: 20091110
  6. TRUVADA [Suspect]
     Indication: HIV INFECTION
     Route: 048
     Dates: start: 20080205
  7. PONTAL [Suspect]
     Indication: HAEMOPHILIC ARTHROPATHY
     Dosage: 250MG TWICE PER DAY
     Route: 048
     Dates: start: 20030401, end: 20040203
  8. STOCRIN [Concomitant]
     Indication: HIV INFECTION
     Route: 048
     Dates: start: 20000606, end: 20040202
  9. STOCRIN [Concomitant]
     Indication: HIV INFECTION
     Route: 048
     Dates: start: 20040217
  10. AMLODIN [Concomitant]
     Indication: HYPERTENSION
     Dosage: 5MG PER DAY
     Route: 048
     Dates: start: 20030401, end: 20031215
  11. AMLODIN OD [Concomitant]
     Indication: HYPERTENSION
     Dosage: 5MG PER DAY
     Route: 048
     Dates: start: 20090401
  12. RENIVACE [Concomitant]
     Indication: HYPERTENSION
     Dosage: 5MG PER DAY
     Route: 048
     Dates: start: 20030401, end: 20040202
  13. RENIVACE [Concomitant]
     Indication: HYPERTENSION
     Dosage: 5MG TWICE PER DAY
     Route: 048
     Dates: start: 20040207
  14. MAINTATE [Concomitant]
     Indication: HYPERTENSION
     Dosage: 5MG PER DAY
     Route: 048
     Dates: start: 20031216, end: 20040202
  15. MAINTATE [Concomitant]
     Indication: HYPERTENSION
     Dosage: 5MG PER DAY
     Route: 048
     Dates: start: 20040205, end: 20040206
  16. CROSS EIGHT M [Concomitant]
     Indication: FACTOR VIII DEFICIENCY
     Dosage: 1000IU PER DAY
     Route: 042
     Dates: start: 20030401, end: 20040201
  17. CROSS EIGHT M [Concomitant]
     Indication: FACTOR VIII DEFICIENCY
     Dosage: 4000IU PER DAY
     Route: 042
     Dates: start: 20040202, end: 20040203
  18. CROSS EIGHT M [Concomitant]
     Indication: FACTOR VIII DEFICIENCY
     Dosage: 2000IU TWICE PER DAY
     Route: 042
     Dates: start: 20040204, end: 20040211
  19. CROSS EIGHT M [Concomitant]
     Indication: FACTOR VIII DEFICIENCY
     Dosage: 1000IU TWICE PER DAY
     Route: 042
     Dates: start: 20040212, end: 20040215
  20. CROSS EIGHT M [Concomitant]
     Indication: FACTOR VIII DEFICIENCY
     Dosage: 1000IU PER DAY
     Route: 042
     Dates: start: 20040216
  21. CROSS EIGHT M [Concomitant]
     Indication: FACTOR VIII DEFICIENCY
     Route: 042
     Dates: start: 20090401, end: 20120618
  22. CROSS EIGHT M [Concomitant]
     Indication: FACTOR VIII DEFICIENCY
     Route: 042
     Dates: start: 20120619, end: 20120721
  23. CROSS EIGHT M [Concomitant]
     Indication: FACTOR VIII DEFICIENCY
     Dosage: 2IU3 PER DAY
     Route: 042
     Dates: start: 20120904, end: 20121030
  24. CROSS EIGHT M [Concomitant]
     Indication: FACTOR VIII DEFICIENCY
     Route: 042
     Dates: start: 20121101, end: 20121112
  25. KOLANTYL [Concomitant]
     Indication: PROPHYLAXIS AGAINST GASTROINTESTINAL ULCER
     Dosage: 1G PER DAY
     Route: 048
     Dates: start: 20030415, end: 20040202
  26. BLOPRESS [Concomitant]
     Indication: HYPERTENSION
     Dosage: 8MG PER DAY
     Route: 048
     Dates: start: 20090401
  27. BLOPRESS [Concomitant]
     Indication: HYPERTENSION
     Dosage: 4MG PER DAY
     Route: 048
     Dates: start: 20090401
  28. CARDENALIN [Concomitant]
     Indication: HYPERTENSION
     Dosage: 1MG PER DAY
     Route: 048
     Dates: start: 20090401, end: 20121210
  29. MAGNESIUM OXIDE [Concomitant]
     Indication: CONSTIPATION PROPHYLAXIS
     Route: 048
     Dates: start: 20090401
  30. BIOFERMIN [Concomitant]
     Indication: CONSTIPATION PROPHYLAXIS
     Dosage: 1G THREE TIMES PER DAY
     Route: 048
     Dates: start: 20090401
  31. METHYCOBAL [Concomitant]
     Indication: SPINAL CORD INFARCTION
     Dosage: 500MCG THREE TIMES PER DAY
     Dates: start: 20090401, end: 20090414
  32. NEUROTROPIN [Concomitant]
     Indication: SPINAL CORD INFARCTION
     Dosage: 8IU TWICE PER DAY
     Route: 048
     Dates: start: 20090401, end: 20090414
  33. ALLEGRA [Concomitant]
     Indication: PRURITUS
     Dosage: 60MG TWICE PER DAY
     Route: 048
     Dates: start: 20090401, end: 20091221
  34. FLUITRAN [Concomitant]
     Indication: HYPERTENSION
     Dosage: 2MG PER DAY
     Route: 048
     Dates: start: 20090401
  35. TAKEPRON [Concomitant]
     Indication: PROPHYLAXIS AGAINST GASTROINTESTINAL ULCER
     Dosage: 15MG PER DAY
     Route: 048
     Dates: start: 20090401
  36. DEPAS [Concomitant]
     Indication: HEADACHE
     Route: 048
     Dates: start: 20100202
  37. LENDORMIN [Concomitant]
     Indication: INSOMNIA
     Dosage: .25MG PER DAY
     Route: 048
     Dates: start: 20090619
  38. POLARAMINE [Concomitant]
     Indication: PRURITUS
     Dosage: 2MG PER DAY
     Route: 048
     Dates: start: 20091222
  39. ALESION [Concomitant]
     Indication: PRURITUS
     Dosage: 20MG PER DAY
     Route: 048
     Dates: start: 20091222, end: 20100315
  40. MYSLEE [Concomitant]
     Indication: INSOMNIA
     Route: 048
     Dates: start: 20090509, end: 20091208
  41. PRORENAL [Concomitant]
     Indication: PAIN
     Dosage: 5MCG THREE TIMES PER DAY
     Route: 048
     Dates: start: 20100105
  42. EBASTEL [Concomitant]
     Indication: PRURITUS
     Dosage: 10MG PER DAY
     Route: 048
     Dates: start: 20100316
  43. OMEPRAL [Concomitant]
     Dosage: 20MG PER DAY
     Route: 048
     Dates: start: 20120401
  44. CELECOX [Concomitant]
     Indication: PAIN
     Dosage: 100MG TWICE PER DAY
     Route: 048
     Dates: start: 20120401, end: 20120808
  45. ADALAT-CR [Concomitant]
     Indication: HYPERTENSION
     Dosage: 20MG TWICE PER DAY
     Route: 048
     Dates: start: 20120401
  46. UNISIA [Concomitant]
     Indication: HYPERTENSION
     Dosage: 1IUAX PER DAY
     Route: 048
     Dates: start: 20120401
  47. MEILAX [Concomitant]
     Indication: INSOMNIA
     Dosage: 1MG PER DAY
     Route: 048
     Dates: start: 20120401
  48. FERO-GRADUMET [Concomitant]
     Indication: ANAEMIA
     Dosage: 105MG PER DAY
     Route: 048
     Dates: start: 20120904, end: 20121112
  49. FERROMIA [Concomitant]
     Indication: ANAEMIA
     Dosage: 50MG PER DAY
     Route: 048
     Dates: start: 20121113
  50. ADVATE [Concomitant]
     Indication: FACTOR VIII DEFICIENCY
     Dosage: 2IU3 PER DAY
     Route: 042
     Dates: start: 20121113

REACTIONS (8)
  - Gastric ulcer [Recovering/Resolving]
  - Haematemesis [Unknown]
  - Haemarthrosis [Recovered/Resolved]
  - Anaemia [Unknown]
  - Drug eruption [Recovered/Resolved]
  - Cerebral arteriosclerosis [Not Recovered/Not Resolved]
  - Headache [Recovering/Resolving]
  - Anaemia [Not Recovered/Not Resolved]
